FAERS Safety Report 9168416 (Version 2)
Quarter: 2013Q2

REPORT INFORMATION
  Report Type: Spontaneous
  Country: US (occurrence: US)
  Receive Date: 20130318
  Receipt Date: 20130404
  Transmission Date: 20140414
  Serious: No
  Sender: FDA-Public Use
  Company Number: US-PFIZER INC-2013088940

PATIENT
  Age: 90 Year
  Sex: Male
  Weight: 77.1 kg

DRUGS (5)
  1. NEURONTIN [Suspect]
     Indication: NEUROPATHY PERIPHERAL
     Dosage: 300 MG, QHS
     Route: 048
     Dates: start: 20121207
  2. NEURONTIN [Suspect]
     Dosage: 100 MG, QHS
     Route: 048
     Dates: start: 20121231
  3. NEURONTIN [Suspect]
     Dosage: 50 MG, QHS
     Route: 048
     Dates: end: 20130213
  4. ATENOLOL [Concomitant]
     Indication: BLOOD PRESSURE ABNORMAL
     Dosage: 25 MG, 1X/DAY
  5. XANAX [Concomitant]
     Indication: ANXIETY
     Dosage: 0.25 MG, 2X/DAY

REACTIONS (4)
  - Muscle spasms [Not Recovered/Not Resolved]
  - Diarrhoea [Not Recovered/Not Resolved]
  - Dizziness [Not Recovered/Not Resolved]
  - Wrong technique in drug usage process [Unknown]
